FAERS Safety Report 5720956-4 (Version None)
Quarter: 2008Q2

REPORT INFORMATION
  Report Type: 
  Country: None (occurrence: None)
  Receive Date: 20080425
  Receipt Date: 20080425
  Transmission Date: 20081010
  Serious: Yes (Life-Threatening, Other)
  Sender: FDA-Public Use
  Company Number: None

PATIENT
  Age: 40 Year
  Sex: Female
  Weight: 65.7716 kg

DRUGS (1)
  1. CYMBALTA [Suspect]
     Indication: DEPRESSION
     Dosage: 40 MG DAILY PO
     Route: 048
     Dates: start: 20060529, end: 20060725

REACTIONS (9)
  - DIZZINESS [None]
  - DYSSTASIA [None]
  - INSOMNIA [None]
  - MALAISE [None]
  - NAUSEA [None]
  - SUICIDAL IDEATION [None]
  - SUICIDE ATTEMPT [None]
  - TINNITUS [None]
  - VOMITING [None]
